FAERS Safety Report 11381758 (Version 2)
Quarter: 2015Q4

REPORT INFORMATION
  Report Type: Report from Study
  Country: US (occurrence: US)
  Receive Date: 20150814
  Receipt Date: 20151009
  Transmission Date: 20160304
  Serious: Yes (Hospitalization)
  Sender: FDA-Public Use
  Company Number: US-ACTELION-A-NJ2015-122343

PATIENT
  Age: 82 Year
  Sex: Female

DRUGS (13)
  1. ADCIRCA [Suspect]
     Active Substance: TADALAFIL
     Indication: PULMONARY ARTERIAL HYPERTENSION
     Dosage: 40 MG, QD
     Route: 048
     Dates: start: 2014
  2. ASPIRIN. [Concomitant]
     Active Substance: ASPIRIN
     Dosage: 81 MG, QD
  3. LEVOTHYROXINE. [Concomitant]
     Active Substance: LEVOTHYROXINE
     Dosage: 88 MCG, QD
  4. CYANOCOBALAMIN. [Concomitant]
     Active Substance: CYANOCOBALAMIN
     Dosage: 1000 MCG, Q1MONTH
     Route: 030
  5. NORVASC [Concomitant]
     Active Substance: AMLODIPINE BESYLATE
     Dosage: 10 MG, QD
  6. TUMS [Concomitant]
     Active Substance: CALCIUM CARBONATE
  7. SILDENAFIL. [Concomitant]
     Active Substance: SILDENAFIL
  8. GLYBURIDE. [Concomitant]
     Active Substance: GLYBURIDE
     Dosage: 2.5 MG, QD
  9. MACITENTAN [Suspect]
     Active Substance: MACITENTAN
     Indication: PULMONARY ARTERIAL HYPERTENSION
     Dosage: 10 MG, QD
     Route: 048
     Dates: start: 2014
  10. PROBIOTIC [Concomitant]
     Active Substance: PROBIOTICS NOS
  11. BENZONATATE. [Concomitant]
     Active Substance: BENZONATATE
     Dosage: 200 MG, PRN
  12. LIPITOR [Concomitant]
     Active Substance: ATORVASTATIN CALCIUM
     Dosage: 10 MG, QD
  13. FUROSEMIDE. [Concomitant]
     Active Substance: FUROSEMIDE
     Dosage: 40 MG, QD

REACTIONS (2)
  - Cerebrovascular accident [Unknown]
  - Dyspnoea [Unknown]
